FAERS Safety Report 20556185 (Version 3)
Quarter: 2022Q1

REPORT INFORMATION
  Report Type: Spontaneous
  Country: BR (occurrence: None)
  Receive Date: 20220304
  Receipt Date: 20220331
  Transmission Date: 20220423
  Serious: Yes (Death, Hospitalization, Other)
  Sender: FDA-Public Use
  Company Number: BR-ROCHE-3035371

PATIENT
  Age: 80 Year
  Sex: Female
  Weight: 41 kg

DRUGS (2)
  1. XELODA [Suspect]
     Active Substance: CAPECITABINE
     Indication: Rectal adenocarcinoma
     Route: 048
     Dates: start: 20220113, end: 20220123
  2. CAPTOPRIL [Concomitant]
     Active Substance: CAPTOPRIL
     Route: 065

REACTIONS (10)
  - Abdominal pain upper [Unknown]
  - Vomiting [Fatal]
  - Malaise [Unknown]
  - Condition aggravated [Unknown]
  - Feeling hot [Unknown]
  - Septic shock [Fatal]
  - Depressed level of consciousness [Fatal]
  - Cardio-respiratory arrest [Fatal]
  - Aspiration [Fatal]
  - Dehydration [Unknown]

NARRATIVE: CASE EVENT DATE: 20220117
